FAERS Safety Report 23712987 (Version 1)
Quarter: 2024Q2

REPORT INFORMATION
  Report Type: Spontaneous
  Country: GB (occurrence: GB)
  Receive Date: 20240405
  Receipt Date: 20240405
  Transmission Date: 20240716
  Serious: Yes (Other)
  Sender: FDA-Public Use
  Company Number: GB-ARGENX-2023-ARGX-GB001092

PATIENT
  Sex: Female

DRUGS (3)
  1. CLARITHROMYCIN [Suspect]
     Active Substance: CLARITHROMYCIN
     Indication: Urinary tract infection
     Route: 065
  2. VYVGART [Suspect]
     Active Substance: EFGARTIGIMOD ALFA-FCAB
     Indication: Myasthenia gravis
     Dosage: 400MG VIAL (20MG/ML) CONCENTRATE
     Route: 065
  3. VYVGART [Suspect]
     Active Substance: EFGARTIGIMOD ALFA-FCAB
     Dosage: UNK
     Route: 065
     Dates: start: 20230710

REACTIONS (20)
  - Lower respiratory tract infection [Unknown]
  - Symptom recurrence [Unknown]
  - Loss of personal independence in daily activities [Unknown]
  - Blood pressure increased [Unknown]
  - Myasthenia gravis [Recovering/Resolving]
  - Abdominal pain lower [Recovered/Resolved]
  - Eye contusion [Recovered/Resolved]
  - Contusion [Recovered/Resolved]
  - Peripheral swelling [Unknown]
  - Periorbital swelling [Unknown]
  - Urinary tract infection [Unknown]
  - Urinary tract infection [Unknown]
  - Myasthenia gravis [Unknown]
  - Myasthenia gravis [Unknown]
  - Chest pain [Unknown]
  - Nausea [Recovered/Resolved]
  - Nausea [Unknown]
  - Malaise [Unknown]
  - Malaise [Unknown]
  - Therapeutic product effect decreased [Unknown]

NARRATIVE: CASE EVENT DATE: 20230529
